FAERS Safety Report 6076705-6 (Version None)
Quarter: 2009Q1

REPORT INFORMATION
  Report Type: 
  Country: None (occurrence: None)
  Receive Date: 20090213
  Receipt Date: 20090210
  Transmission Date: 20090719
  Serious: Yes (Death, Life-Threatening)
  Sender: FDA-Public Use
  Company Number: PHHY2008JP31273

PATIENT
  Sex: Male

DRUGS (7)
  1. NEORAL [Suspect]
     Indication: ASTHMA
     Dosage: 100 MG, BID
     Route: 048
     Dates: start: 20081106, end: 20081128
  2. NEORAL [Suspect]
     Dosage: 50 MG, BID
     Route: 048
     Dates: start: 20081129, end: 20081214
  3. RINDERON [Suspect]
     Indication: ASTHMA
     Dosage: 4 MG/DAY
     Route: 042
     Dates: start: 20081028, end: 20081101
  4. RINDERON [Suspect]
     Dosage: 1 MG/DAY
     Route: 042
     Dates: start: 20081101
  5. STEROIDS NOS [Concomitant]
     Indication: ASTHMA
     Dosage: UNK
     Route: 042
     Dates: start: 20081028
  6. NEOPHYLLIN [Concomitant]
  7. SAXIZON [Concomitant]
     Dosage: 400 MG/DAY

REACTIONS (10)
  - ACUTE MYOCARDIAL INFARCTION [None]
  - ASPERGILLOSIS [None]
  - BLOOD BETA-D-GLUCAN INCREASED [None]
  - C-REACTIVE PROTEIN INCREASED [None]
  - CARDIO-RESPIRATORY ARREST [None]
  - GLOSSODYNIA [None]
  - MUSCULAR WEAKNESS [None]
  - PNEUMONIA FUNGAL [None]
  - PYREXIA [None]
  - TONGUE COATED [None]
